FAERS Safety Report 9292491 (Version 1)
Quarter: 2013Q2

REPORT INFORMATION
  Report Type: Spontaneous
  Country: IT (occurrence: IT)
  Receive Date: 20130516
  Receipt Date: 20130516
  Transmission Date: 20140414
  Serious: Yes (Hospitalization)
  Sender: FDA-Public Use
  Company Number: IT-PFIZER INC-2013150238

PATIENT
  Age: 57 Year
  Sex: Female
  Weight: 84 kg

DRUGS (8)
  1. DOXORUBICIN HCL [Suspect]
     Indication: HODGKIN^S DISEASE
     Dosage: 50 MG, CYCLIC
     Route: 048
     Dates: start: 20130305, end: 20130506
  2. VINCRISTINE SULFATE [Suspect]
     Indication: HODGKIN^S DISEASE
     Dosage: 1 MG, CYCLIC
     Route: 048
     Dates: start: 20130305, end: 20130506
  3. ETOPOSIDE [Suspect]
     Indication: HODGKIN^S DISEASE
     Dosage: 165 MG, CYCLIC
     Route: 048
     Dates: start: 20130305, end: 20130506
  4. CHLORAMBUCIL [Suspect]
     Indication: HODGKIN^S DISEASE
     Dosage: 10 MG, CYCLIC
     Route: 048
     Dates: start: 20130305, end: 20130506
  5. PREDNISONE [Suspect]
     Indication: HODGKIN^S DISEASE
     Dosage: 50 MG, CYCLIC
     Route: 048
     Dates: start: 20130305, end: 20130506
  6. PROCARBAZINE HYDROCHLORIDE [Suspect]
     Indication: HODGKIN^S DISEASE
     Dosage: 150 MG, CYCLIC
     Route: 048
     Dates: start: 20130305, end: 20130506
  7. VINBLASTINE SULFATE [Suspect]
     Indication: HODGKIN^S DISEASE
     Dosage: 10 MG, CYCLIC
     Route: 048
     Dates: start: 20130305, end: 20130506
  8. BLEOMYCIN SULFATE [Suspect]
     Indication: HODGKIN^S DISEASE
     Dosage: 12 MG, CYCLIC
     Route: 048
     Dates: start: 20130305, end: 20130506

REACTIONS (2)
  - Anaemia [Recovered/Resolved with Sequelae]
  - Hyperglycaemia [Recovered/Resolved with Sequelae]
